FAERS Safety Report 4519347-3 (Version None)
Quarter: 2004Q4

REPORT INFORMATION
  Report Type: 
  Country: None (occurrence: None)
  Receive Date: 20041201
  Receipt Date: 20041119
  Transmission Date: 20050328
  Serious: Yes (Death)
  Sender: FDA-Public Use
  Company Number: A044-002-005149

PATIENT
  Age: 77 Year
  Sex: Female

DRUGS (4)
  1. ARICEPT [Suspect]
     Indication: DEMENTIA
     Dosage: 10 MG, 1 IN 1 D, ORAL
     Route: 048
     Dates: start: 20040713
  2. DICLOFENAC (DICLOFENAC) [Concomitant]
  3. MIRTAZAPINE [Concomitant]
  4. UNSPECIFIED ANTI-HYPERTENSIVE MEDICATION [Concomitant]

REACTIONS (1)
  - CEREBROVASCULAR ACCIDENT [None]
